FAERS Safety Report 5386374-6 (Version None)
Quarter: 2007Q3

REPORT INFORMATION
  Report Type: 
  Country: None (occurrence: None)
  Receive Date: 20070710
  Receipt Date: 20070710
  Transmission Date: 20080115
  Serious: Yes (Hospitalization)
  Sender: FDA-Public Use
  Company Number: None

PATIENT
  Age: 61 Year
  Sex: Male

DRUGS (2)
  1. METHYLPREDNISOLONE [Suspect]
     Indication: HYPERSENSITIVITY
     Dosage: 60MG ONCE IV
     Route: 042
     Dates: start: 20070414, end: 20070414
  2. DIPHENHYDRAMINE HCL [Suspect]
     Dosage: 50MG ONCE IV
     Route: 042
     Dates: start: 20070414, end: 20070414

REACTIONS (4)
  - ABNORMAL BEHAVIOUR [None]
  - CONFUSIONAL STATE [None]
  - DELIRIUM [None]
  - SCREAMING [None]
